FAERS Safety Report 4490128-2 (Version None)
Quarter: 2004Q4

REPORT INFORMATION
  Report Type: 
  Country: None (occurrence: None)
  Receive Date: 20041028
  Receipt Date: 20041022
  Transmission Date: 20050328
  Serious: Yes (Life-Threatening, Hospitalization, Disabling)
  Sender: FDA-Public Use
  Company Number: HQWYE096625MAY04

PATIENT
  Age: 63 Year
  Sex: Male
  Weight: 86.26 kg

DRUGS (11)
  1. RAPAMUNE [Suspect]
     Indication: PROPHYLAXIS AGAINST TRANSPLANT REJECTION
     Dosage: 5 MG 1X PER 1 DAY
     Dates: start: 20031028, end: 20040520
  2. CORDARONE [Suspect]
     Indication: SUPRAVENTRICULAR TACHYCARDIA
     Dates: start: 20040101, end: 20040101
  3. SULFAMETHOXAZOLE + TRIMETHOPRIM [Concomitant]
  4. PEPCID [Concomitant]
  5. PREDNISONE [Concomitant]
  6. VALCYTE [Concomitant]
  7. MINOXIDIL [Concomitant]
  8. TOPROL-XL [Concomitant]
  9. PROGRAF [Concomitant]
  10. NORVASC [Concomitant]
  11. INSULIN [Concomitant]

REACTIONS (20)
  - ACUTE RESPIRATORY DISTRESS SYNDROME [None]
  - BLOOD CALCIUM DECREASED [None]
  - BLOOD GLUCOSE DECREASED [None]
  - BLOOD PRESSURE SYSTOLIC INCREASED [None]
  - CARDIAC FAILURE CONGESTIVE [None]
  - CHOLECYSTITIS [None]
  - DIARRHOEA [None]
  - FAECAL OCCULT BLOOD POSITIVE [None]
  - FEBRILE NEUTROPENIA [None]
  - GENERAL PHYSICAL HEALTH DETERIORATION [None]
  - HAEMODIALYSIS [None]
  - HAEMOGLOBIN DECREASED [None]
  - HEPATITIS [None]
  - PNEUMONIA [None]
  - PNEUMONIA ASPERGILLUS [None]
  - RENAL FAILURE ACUTE [None]
  - RESPIRATORY FAILURE [None]
  - SEPSIS [None]
  - SUPRAVENTRICULAR TACHYCARDIA [None]
  - THERAPEUTIC AGENT TOXICITY [None]
